FAERS Safety Report 20755307 (Version 1)
Quarter: 2022Q2

REPORT INFORMATION
  Report Type: Report from Study
  Country: KR (occurrence: KR)
  Receive Date: 20220427
  Receipt Date: 20220427
  Transmission Date: 20220721
  Serious: Yes (Hospitalization)
  Sender: FDA-Public Use
  Company Number: KR-BAYER-2022A059606

PATIENT
  Age: 73 Year
  Sex: Female
  Weight: 47 kg

DRUGS (7)
  1. RIVAROXABAN [Suspect]
     Active Substance: RIVAROXABAN
     Indication: Atrial fibrillation
     Dosage: 15 MG, QD
     Route: 048
     Dates: start: 20210407
  2. RIVAROXABAN [Suspect]
     Active Substance: RIVAROXABAN
     Indication: Thrombosis prophylaxis
     Route: 048
  3. CLANZA [Concomitant]
     Indication: Pain
     Dosage: 100 MG
     Route: 048
     Dates: start: 20180801
  4. GABAPENTIN [Concomitant]
     Active Substance: GABAPENTIN
     Indication: Pain
     Dosage: 400 MG, BID
     Dates: start: 20180801
  5. RISTI [Concomitant]
     Indication: Amnesia
     Dosage: 1.5 MG, BID
     Route: 048
     Dates: start: 20180801
  6. SINIL [Concomitant]
     Indication: Antacid therapy
     Dosage: 500 MG, BID
     Dates: start: 20220309
  7. VALSARTAN [Concomitant]
     Active Substance: VALSARTAN
     Indication: Hypertension
     Dosage: 80 MG, QD
     Dates: start: 20220310

REACTIONS (2)
  - Cerebral infarction [Recovering/Resolving]
  - Anaemia [Recovered/Resolved]

NARRATIVE: CASE EVENT DATE: 20220304
